FAERS Safety Report 5588803-1 (Version None)
Quarter: 2008Q1

REPORT INFORMATION
  Report Type: 
  Country: None (occurrence: None)
  Receive Date: 20080111
  Receipt Date: 20080103
  Transmission Date: 20080703
  Serious: Yes (Death)
  Sender: FDA-Public Use
  Company Number: DK-ABBOTT-07P-044-0425269-00

PATIENT
  Sex: Female
  Weight: 84 kg

DRUGS (7)
  1. HUMIRA [Suspect]
     Indication: RHEUMATOID ARTHRITIS
     Route: 058
     Dates: end: 20050701
  2. HUMIRA [Suspect]
     Route: 058
     Dates: start: 20050810, end: 20051013
  3. ETANERCEPT [Suspect]
     Indication: RHEUMATOID ARTHRITIS
     Route: 058
     Dates: start: 20060105, end: 20060222
  4. INFLIXIMAB [Suspect]
     Indication: RHEUMATOID ARTHRITIS
     Route: 042
     Dates: start: 20060323, end: 20070322
  5. RITUXIMAB [Suspect]
     Indication: RHEUMATOID ARTHRITIS
     Route: 042
     Dates: start: 20070524, end: 20070820
  6. SULFASALAZINE [Concomitant]
     Indication: DRUG USE FOR UNKNOWN INDICATION
     Route: 048
  7. METHOTREXATE [Concomitant]
     Indication: DRUG USE FOR UNKNOWN INDICATION
     Route: 048

REACTIONS (6)
  - ABDOMINAL NEOPLASM [None]
  - ADENOCARCINOMA PANCREAS [None]
  - DRUG INEFFECTIVE [None]
  - HEPATIC NEOPLASM MALIGNANT [None]
  - LUNG ADENOCARCINOMA METASTATIC [None]
  - METASTASES TO PERITONEUM [None]
